FAERS Safety Report 11520350 (Version 1)
Quarter: 2015Q3

REPORT INFORMATION
  Report Type: Spontaneous
  Country: US (occurrence: US)
  Receive Date: 20150918
  Receipt Date: 20150918
  Transmission Date: 20151125
  Serious: No
  Sender: FDA-Public Use
  Company Number: US-RB-076150-15

PATIENT

DRUGS (2)
  1. MUCINEX SINUS-MAX SEVERE CONGESTION RELIEF [Suspect]
     Active Substance: ACETAMINOPHEN\GUAIFENESIN\PHENYLEPHRINE HYDROCHLORIDE
     Indication: NASAL CONGESTION
     Dosage: 2DF. 2 TABLETS EVERY 4 HOURS FOR 3 DAYS,PRN
     Route: 065
     Dates: start: 20141229
  2. MUCINEX [Suspect]
     Active Substance: GUAIFENESIN
     Indication: PRODUCT USED FOR UNKNOWN INDICATION
     Dosage: 600MG. PRODUCT USED FOR 7 DAYS AND LAST USED ON 29/DEC/2014; AMOUNT USED: 2 TABLETS.,FREQUENCY UNK
     Route: 065
     Dates: start: 20141222

REACTIONS (3)
  - Drug ineffective [Not Recovered/Not Resolved]
  - Nasal congestion [Recovered/Resolved]
  - Incorrect drug administration duration [Recovered/Resolved]
